FAERS Safety Report 5165077-7 (Version None)
Quarter: 2006Q4

REPORT INFORMATION
  Report Type: 
  Country: None (occurrence: None)
  Receive Date: 20061124
  Receipt Date: 20061110
  Transmission Date: 20070319
  Serious: Yes (Life-Threatening, Other)
  Sender: FDA-Public Use
  Company Number: 2006126236

PATIENT
  Age: 65 Year
  Sex: Male
  Weight: 80 kg

DRUGS (5)
  1. LYRICA [Suspect]
     Indication: COMPLEX PARTIAL SEIZURES
     Dosage: 150 MG (50 MG, 3 IN 1 D), ORAL
     Route: 048
     Dates: start: 20061001
  2. LYRICA [Suspect]
     Indication: EPILEPSY
     Dosage: 150 MG (50 MG, 3 IN 1 D), ORAL
     Route: 048
     Dates: start: 20061001
  3. ATORVASTATIN                       (ATORVASTATIN) [Concomitant]
  4. AMLODIPINE [Concomitant]
  5. PERINDOPRIL ERBUMINE [Concomitant]

REACTIONS (6)
  - ATRIOVENTRICULAR BLOCK [None]
  - BLOOD PRESSURE INCREASED [None]
  - CONDITION AGGRAVATED [None]
  - DEPRESSED LEVEL OF CONSCIOUSNESS [None]
  - HEADACHE [None]
  - POSTURE ABNORMAL [None]
